FAERS Safety Report 9649272 (Version 3)
Quarter: 2013Q4

REPORT INFORMATION
  Report Type: Spontaneous
  Country: JP (occurrence: JP)
  Receive Date: 20131028
  Receipt Date: 20131212
  Transmission Date: 20140711
  Serious: Yes (Death)
  Sender: FDA-Public Use
  Company Number: JP-GLAXOSMITHKLINE-B0929241A

PATIENT
  Age: 89 Year
  Sex: Male

DRUGS (9)
  1. AVOLVE [Suspect]
     Indication: BENIGN PROSTATIC HYPERPLASIA
     Dosage: .5MG PER DAY
     Route: 048
  2. URIEF [Concomitant]
     Route: 048
  3. ARICEPT [Concomitant]
     Route: 048
  4. OMEPRAZOLE [Concomitant]
     Route: 065
  5. METILDIGOXIN [Concomitant]
     Route: 048
  6. MAGLAX [Concomitant]
     Route: 048
  7. POLYFUL [Concomitant]
     Route: 048
  8. GRAMALIL [Concomitant]
     Route: 048
  9. MYSLEE [Concomitant]
     Route: 048

REACTIONS (2)
  - Pneumonia aspiration [Fatal]
  - Impulse-control disorder [Not Recovered/Not Resolved]
